FAERS Safety Report 11345406 (Version 4)
Quarter: 2016Q1

REPORT INFORMATION
  Report Type: Report from Study
  Country: BR (occurrence: BR)
  Receive Date: 20150806
  Receipt Date: 20160318
  Transmission Date: 20160525
  Serious: Yes (Hospitalization, Other)
  Sender: FDA-Public Use
  Company Number: PHHY2013BR009770

PATIENT
  Age: 44 Year
  Sex: Male
  Weight: 60 kg

DRUGS (3)
  1. EXJADE [Suspect]
     Active Substance: DEFERASIROX
     Dosage: 35 MG/KG, QD (4 TABLETS OF 500 MG PER DAY)
     Route: 048
  2. EXJADE [Suspect]
     Active Substance: DEFERASIROX
     Indication: MYELODYSPLASTIC SYNDROME
     Dosage: 35 MG/KG, QD (2000 MG, 4 TABLETS OF 500 MG PER DAY)
     Route: 048
     Dates: start: 2012
  3. EXJADE [Suspect]
     Active Substance: DEFERASIROX
     Dosage: 15 MG/KG, QD (750 MG)
     Route: 048

REACTIONS (9)
  - Cerebrovascular accident [Recovering/Resolving]
  - Weight decreased [Recovered/Resolved]
  - Dizziness [Unknown]
  - Erectile dysfunction [Not Recovered/Not Resolved]
  - Serum ferritin increased [Recovering/Resolving]
  - Weight increased [Not Recovered/Not Resolved]
  - Drug intolerance [Unknown]
  - Brain neoplasm [Unknown]
  - Decreased appetite [Unknown]

NARRATIVE: CASE EVENT DATE: 201409
